FAERS Safety Report 18473133 (Version 1)
Quarter: 2020Q4

REPORT INFORMATION
  Report Type: Spontaneous
  Country: NL (occurrence: NL)
  Receive Date: 20201106
  Receipt Date: 20201106
  Transmission Date: 20210114
  Serious: Yes (Other)
  Sender: FDA-Public Use
  Company Number: NL-TEVA-2020-NL-1844623

PATIENT
  Sex: Male

DRUGS (1)
  1. METOCLOPRAMIDE TABLET 10MG / BRAND NAME NOT SPECIFIED [Suspect]
     Active Substance: METOCLOPRAMIDE
     Indication: NAUSEA
     Dosage: MAXIMUM 3X PER DAY 1, UNIT DOSE: 10 MG
     Route: 065
     Dates: start: 202010, end: 20201008

REACTIONS (1)
  - Haematochezia [Recovered/Resolved]
